FAERS Safety Report 5472676-1 (Version None)
Quarter: 2007Q4

REPORT INFORMATION
  Report Type: 
  Country: None (occurrence: None)
  Receive Date: 20071001
  Receipt Date: 20060811
  Transmission Date: 20080405
  Serious: No
  Sender: FDA-Public Use
  Company Number: US-ASTRAZENECA-2006UW16047

PATIENT
  Age: 48 Year
  Sex: Female
  Weight: 71.2 kg

DRUGS (4)
  1. ARIMIDEX [Suspect]
     Indication: BREAST CANCER
     Route: 048
     Dates: start: 20060301
  2. TOPROL-XL [Concomitant]
  3. ALTACE [Concomitant]
  4. XANAX [Concomitant]
     Indication: SLEEP DISORDER

REACTIONS (4)
  - ARTHRITIS [None]
  - FATIGUE [None]
  - HOT FLUSH [None]
  - INFLUENZA LIKE ILLNESS [None]
